FAERS Safety Report 20669120 (Version 1)
Quarter: 2022Q2

REPORT INFORMATION
  Report Type: Spontaneous
  Country: US (occurrence: US)
  Receive Date: 20220404
  Receipt Date: 20220404
  Transmission Date: 20220720
  Serious: No
  Sender: FDA-Public Use
  Company Number: US-PFIZER INC-202101005261

PATIENT
  Age: 58 Year
  Sex: Female
  Weight: 85.261 kg

DRUGS (9)
  1. IBRANCE [Suspect]
     Active Substance: PALBOCICLIB
     Indication: Breast cancer female
     Dosage: 125 MG, CYCLIC (21 DAYS ON THEN 7DAYS OFF)
     Route: 048
     Dates: start: 201908
  2. CALCIUM [Concomitant]
     Active Substance: CALCIUM
  3. MINERALS\VITAMINS [Concomitant]
     Active Substance: MINERALS\VITAMINS
  4. EXCEDRIN EXTRA STRENGTH [Concomitant]
     Active Substance: ACETAMINOPHEN\ASPIRIN\CAFFEINE
  5. HYDROCODONE BITARTRATE [Concomitant]
     Active Substance: HYDROCODONE BITARTRATE
  6. PROMETHAZINE HYDROCHLORIDE [Concomitant]
     Active Substance: PROMETHAZINE HYDROCHLORIDE
  7. PANTOPRAZOLE SODIUM [Concomitant]
     Active Substance: PANTOPRAZOLE SODIUM
  8. GABAPENTIN [Concomitant]
     Active Substance: GABAPENTIN
  9. FULVESTRANT [Concomitant]
     Active Substance: FULVESTRANT

REACTIONS (6)
  - Nausea [Unknown]
  - Headache [Unknown]
  - Gait disturbance [Unknown]
  - Groin pain [Unknown]
  - Dyskinesia [Unknown]
  - Neuralgia [Unknown]

NARRATIVE: CASE EVENT DATE: 20190101
